FAERS Safety Report 4582106-X (Version None)
Quarter: 2005Q1

REPORT INFORMATION
  Report Type: 
  Country: None (occurrence: None)
  Receive Date: 20050119
  Receipt Date: 20031212
  Transmission Date: 20050727
  Serious: Yes (Other)
  Sender: FDA-Public Use
  Company Number: A03200302958

PATIENT
  Age: 67 Year
  Sex: Female
  Weight: 88.905 kg

DRUGS (5)
  1. PLAVIX [Suspect]
     Indication: STENT PLACEMENT
     Dosage: 75 MG QD - ORAL
     Route: 048
     Dates: start: 20031120
  2. VASOTEC [Suspect]
     Indication: HYPERTENSION
     Dosage: 20 MG BID - ORAL
     Route: 048
  3. LASIX [Suspect]
     Indication: DIURETIC THERAPY
     Dosage: 20 MG QOD - ORAL
     Route: 048
  4. ATENOLOL [Suspect]
     Indication: HYPERTENSION
     Dosage: 50 MG BID - ORAL
     Route: 048
  5. INSULIN - SOLUTION - [Suspect]
     Indication: DIABETES MELLITUS
     Dosage: SUBCUTANEOUS
     Route: 058

REACTIONS (5)
  - DRUG INTERACTION [None]
  - MIDDLE INSOMNIA [None]
  - SWELLING FACE [None]
  - SWOLLEN TONGUE [None]
  - URTICARIA [None]
